FAERS Safety Report 6292614-1 (Version None)
Quarter: 2009Q3

REPORT INFORMATION
  Report Type: 
  Country: None (occurrence: None)
  Receive Date: 20090731
  Receipt Date: 20090720
  Transmission Date: 20100115
  Serious: Yes (Other)
  Sender: FDA-Public Use
  Company Number: US-PFIZER INC-2009244971

PATIENT
  Sex: Male

DRUGS (4)
  1. LIPITOR [Suspect]
  2. COZAAR [Concomitant]
  3. DILTIAZEM [Concomitant]
  4. ACETYLSALICYLIC ACID [Concomitant]

REACTIONS (3)
  - PHOTOSENSITIVITY REACTION [None]
  - STENT PLACEMENT [None]
  - VASCULAR GRAFT [None]
